FAERS Safety Report 20638487 (Version 3)
Quarter: 2022Q2

REPORT INFORMATION
  Report Type: Spontaneous
  Country: US (occurrence: US)
  Receive Date: 20220325
  Receipt Date: 20220502
  Transmission Date: 20220721
  Serious: Yes (Hospitalization, Other)
  Sender: FDA-Public Use
  Company Number: US-009507513-2203USA005635

PATIENT
  Age: 68 Year
  Sex: Female
  Weight: 64.853 kg

DRUGS (4)
  1. KEYTRUDA [Suspect]
     Active Substance: PEMBROLIZUMAB
     Indication: Lymphoma
     Dosage: 200 MG, UNK, TOTAL OF 7 CYCLES
     Route: 042
     Dates: start: 20210629, end: 20220314
  2. KEYTRUDA [Suspect]
     Active Substance: PEMBROLIZUMAB
     Indication: Tongue neoplasm malignant stage unspecified
  3. ZANTAC [Concomitant]
     Active Substance: RANITIDINE HYDROCHLORIDE
     Dosage: UNK
  4. TYLENOL CRIANCA [Concomitant]
     Dosage: UNK

REACTIONS (7)
  - Urinary tract inflammation [Not Recovered/Not Resolved]
  - Nephrolithiasis [Not Recovered/Not Resolved]
  - Acute kidney injury [Unknown]
  - Malignant neoplasm progression [Unknown]
  - Alopecia [Unknown]
  - Urinary tract infection [Unknown]
  - Product use issue [Unknown]

NARRATIVE: CASE EVENT DATE: 20220310
